FAERS Safety Report 5571191-4 (Version None)
Quarter: 2007Q4

REPORT INFORMATION
  Report Type: 
  Country: None (occurrence: None)
  Receive Date: 20071221
  Receipt Date: 20070227
  Transmission Date: 20080405
  Serious: No
  Sender: FDA-Public Use
  Company Number: A0635444A

PATIENT
  Age: 44 Year
  Sex: Female
  Weight: 63.6 kg

DRUGS (3)
  1. FLUTICASONE PROPIONATE [Suspect]
     Indication: NASAL CONGESTION
     Dosage: 1SPR PER DAY
     Route: 045
     Dates: start: 20061208, end: 20061211
  2. NASAREL [Concomitant]
  3. NOR-QD [Concomitant]

REACTIONS (2)
  - ILL-DEFINED DISORDER [None]
  - PHARMACEUTICAL PRODUCT COMPLAINT [None]
